FAERS Safety Report 25700383 (Version 1)
Quarter: 2025Q3

REPORT INFORMATION
  Report Type: Spontaneous
  Country: US (occurrence: None)
  Receive Date: 20250818
  Receipt Date: 20250818
  Transmission Date: 20251020
  Serious: Yes (Other)
  Sender: FDA-CTU
  Company Number: None

PATIENT
  Age: 80 Year
  Sex: Female

DRUGS (1)
  1. OCALIVA [Suspect]
     Active Substance: OBETICHOLIC ACID
     Indication: Cholangitis sclerosing
     Dosage: FREQUENCY : DAILY;?
     Route: 048
     Dates: start: 20250818

REACTIONS (2)
  - Off label use [None]
  - Cholangitis sclerosing [None]

NARRATIVE: CASE EVENT DATE: 20250818
